FAERS Safety Report 13029758 (Version 3)
Quarter: 2017Q1

REPORT INFORMATION
  Report Type: Spontaneous
  Country: IT (occurrence: IT)
  Receive Date: 20161215
  Receipt Date: 20170301
  Transmission Date: 20170428
  Serious: Yes (Hospitalization)
  Sender: FDA-Public Use
  Company Number: IT-AUROBINDO-AUR-APL-2016-15198

PATIENT
  Age: 83 Year
  Sex: Female

DRUGS (1)
  1. OLANZAPINE 5MG [Suspect]
     Active Substance: OLANZAPINE
     Indication: PRODUCT USED FOR UNKNOWN INDICATION
     Dosage: 5 MG, DAILY
     Route: 048
     Dates: start: 20160922, end: 20160923

REACTIONS (4)
  - Overdose [Recovered/Resolved]
  - Sopor [Recovered/Resolved]
  - Asthenia [Recovered/Resolved]
  - Drug dispensing error [Recovered/Resolved]

NARRATIVE: CASE EVENT DATE: 20160922
